FAERS Safety Report 7918689-9 (Version None)
Quarter: 2011Q4

REPORT INFORMATION
  Report Type: 
  Country: None (occurrence: None)
  Receive Date: 20111116
  Receipt Date: 20111103
  Transmission Date: 20120403
  Serious: Yes (Other)
  Sender: FDA-Public Use
  Company Number: FR-PFIZER INC-2011251753

PATIENT
  Age: 50 Year
  Sex: Male

DRUGS (3)
  1. CEFPODOXIME PROXETIL [Suspect]
     Indication: SINUSITIS
     Dosage: 100 MG, 2X/DAY
     Route: 048
     Dates: start: 20110923, end: 20110923
  2. PREDNISOLONE [Concomitant]
     Indication: SINUSITIS
     Dosage: 4 TABLET/D
     Route: 048
     Dates: start: 20110923, end: 20110928
  3. ACETAMINOPHEN [Concomitant]
     Indication: SINUSITIS
     Dosage: UNK
     Route: 048
     Dates: start: 20110923, end: 20110928

REACTIONS (1)
  - ANGIOEDEMA [None]
